FAERS Safety Report 7202266-1 (Version None)
Quarter: 2010Q4

REPORT INFORMATION
  Report Type: 
  Country: None (occurrence: None)
  Receive Date: 20101229
  Receipt Date: 20101217
  Transmission Date: 20110411
  Serious: Yes (Other)
  Sender: FDA-Public Use
  Company Number: GB-BRISTOL-MYERS SQUIBB COMPANY-15450547

PATIENT

DRUGS (1)
  1. SPRYCEL [Suspect]

REACTIONS (2)
  - COLITIS ULCERATIVE [None]
  - DIARRHOEA [None]
